FAERS Safety Report 10461982 (Version 2)
Quarter: 2014Q4

REPORT INFORMATION
  Report Type: Spontaneous
  Country: US (occurrence: US)
  Receive Date: 20140918
  Receipt Date: 20141027
  Transmission Date: 20150528
  Serious: No
  Sender: FDA-Public Use
  Company Number: US-ROXANE LABORATORIES, INC.-2014-RO-01426RO

PATIENT
  Sex: Male

DRUGS (2)
  1. IPRATROPIUM BROMIDE NASAL SOLUTION, 0.03% [Suspect]
     Active Substance: IPRATROPIUM BROMIDE
     Indication: UPPER-AIRWAY COUGH SYNDROME
     Route: 045
  2. BLOOD THINNER [Concomitant]
     Active Substance: UNSPECIFIED INGREDIENT
     Route: 065

REACTIONS (2)
  - Drug ineffective for unapproved indication [Not Recovered/Not Resolved]
  - Product quality issue [Not Recovered/Not Resolved]
